FAERS Safety Report 16699300 (Version 1)
Quarter: 2019Q3

REPORT INFORMATION
  Report Type: Report from Study
  Country: IT (occurrence: IT)
  Receive Date: 20190813
  Receipt Date: 20190813
  Transmission Date: 20191004
  Serious: Yes (Hospitalization, Other)
  Sender: FDA-Public Use
  Company Number: IT-AMGEN-ITACT2019126849

PATIENT
  Age: 19 Year
  Sex: Male

DRUGS (26)
  1. VINCRISTINE [Suspect]
     Active Substance: VINCRISTINE
     Indication: ACUTE LYMPHOCYTIC LEUKAEMIA
     Dosage: 2 MILLIGRAM
     Route: 042
  2. MTX [METHOTREXATE] [Suspect]
     Active Substance: METHOTREXATE SODIUM
     Indication: PROPHYLAXIS
     Dosage: 12.5 MILLIGRAM
     Route: 037
  3. MERREM [Concomitant]
     Active Substance: MEROPENEM
     Dosage: 1 GR EV
  4. ZARZIO [Concomitant]
     Active Substance: FILGRASTIM
     Dosage: 30 UNK
  5. BLINATUMOMAB [Suspect]
     Active Substance: BLINATUMOMAB
     Indication: ACUTE LYMPHOCYTIC LEUKAEMIA
     Dosage: UNK
     Route: 065
  6. CYTARABIN [Suspect]
     Active Substance: CYTARABINE
     Indication: ACUTE LYMPHOCYTIC LEUKAEMIA
     Dosage: 153.97 MILLIGRAM
     Route: 042
  7. 6 MP [Suspect]
     Active Substance: MERCAPTOPURINE
     Indication: ACUTE LYMPHOCYTIC LEUKAEMIA
     Dosage: 123.16 MILLIGRAM
     Route: 048
  8. ARA-C [Suspect]
     Active Substance: CYTARABINE
     Dosage: 50 MILLIGRAM
     Route: 037
     Dates: start: 20190313, end: 20190323
  9. IDARUBICIN [Suspect]
     Active Substance: IDARUBICIN
     Dosage: 24.64 MILLIGRAM
     Route: 042
     Dates: start: 20190313, end: 20190323
  10. CYCLOPHOSPHAMIDE. [Suspect]
     Active Substance: CYCLOPHOSPHAMIDE
     Dosage: 2053 MILLIGRAM
     Route: 042
     Dates: start: 20190313, end: 20190323
  11. DEXAMETHASONE. [Suspect]
     Active Substance: DEXAMETHASONE
     Indication: ACUTE LYMPHOCYTIC LEUKAEMIA
     Dosage: 10.27 MILLIGRAM
     Route: 042
  12. CYCLOPHOSPHAMIDE. [Suspect]
     Active Substance: CYCLOPHOSPHAMIDE
     Indication: ACUTE LYMPHOCYTIC LEUKAEMIA
     Dosage: 2053 MILLIGRAM
     Route: 042
  13. 6 MP [Suspect]
     Active Substance: MERCAPTOPURINE
     Dosage: 123.16 MILLIGRAM
     Route: 048
     Dates: start: 20190313, end: 20190323
  14. ACICLOVIR [Concomitant]
     Active Substance: ACYCLOVIR
     Dosage: 400 MILLIGRAM
     Route: 048
  15. FLUMETOL [FLUOROMETHOLONE] [Concomitant]
     Dosage: UNK GTT DROPS
  16. IDARUBICIN [Suspect]
     Active Substance: IDARUBICIN
     Indication: ACUTE LYMPHOCYTIC LEUKAEMIA
     Dosage: 24.64 MILLIGRAM
     Route: 042
  17. DEXAMETHASONE. [Suspect]
     Active Substance: DEXAMETHASONE
     Dosage: 4 MILLIGRAM
     Route: 037
     Dates: start: 20190313, end: 20190323
  18. G-CSF [Suspect]
     Active Substance: GRANULOCYTE COLONY-STIMULATING FACTOR NOS
     Dosage: 600 MICROGRAM
     Route: 058
     Dates: start: 20190313, end: 20190323
  19. TOBRADEX [Concomitant]
     Active Substance: DEXAMETHASONE\TOBRAMYCIN
  20. TARGOSID [Concomitant]
     Active Substance: TEICOPLANIN
     Dosage: 200 MILLIGRAM
  21. OMEPRAZEN [OMEPRAZOLE] [Concomitant]
     Active Substance: OMEPRAZOLE
     Dosage: 20 MILLIGRAM
     Route: 048
  22. DEXAMETHASONE. [Suspect]
     Active Substance: DEXAMETHASONE
     Dosage: 10.27 MILLIGRAM
     Route: 042
     Dates: start: 20190313, end: 20190323
  23. ARA-C [Suspect]
     Active Substance: CYTARABINE
     Indication: PROPHYLAXIS
     Dosage: 50 MILLIGRAM
     Route: 037
  24. VINCRISTINE [Suspect]
     Active Substance: VINCRISTINE
     Dosage: 2 MILLIGRAM
     Route: 042
     Dates: start: 20190313, end: 20190323
  25. CYTARABIN [Suspect]
     Active Substance: CYTARABINE
     Dosage: 153.97 MILLIGRAM
     Route: 042
     Dates: start: 20190313, end: 20190323
  26. G-CSF [Suspect]
     Active Substance: GRANULOCYTE COLONY-STIMULATING FACTOR NOS
     Indication: PROPHYLAXIS
     Dosage: 600 MICROGRAM
     Route: 058

REACTIONS (2)
  - Febrile neutropenia [Recovered/Resolved]
  - Blepharitis [Recovered/Resolved]

NARRATIVE: CASE EVENT DATE: 20190325
